FAERS Safety Report 21334197 (Version 1)
Quarter: 2022Q3

REPORT INFORMATION
  Report Type: Spontaneous
  Country: US (occurrence: None)
  Receive Date: 20220914
  Receipt Date: 20220914
  Transmission Date: 20221027
  Serious: No
  Sender: FDA-Public Use
  Company Number: None

PATIENT
  Age: 45 Year
  Sex: Female
  Weight: 83.25 kg

DRUGS (1)
  1. CYCLOSPORINE [Suspect]
     Active Substance: CYCLOSPORINE
     Indication: Dry eye
     Dosage: OTHER QUANTITY : 2 DROP(S);?FREQUENCY : TWICE A DAY;?
     Route: 047
     Dates: start: 20220816, end: 20220817

REACTIONS (4)
  - Product substitution issue [None]
  - Application site pain [None]
  - Eye irritation [None]
  - Dry eye [None]

NARRATIVE: CASE EVENT DATE: 20220816
